FAERS Safety Report 23932552 (Version 1)
Quarter: 2024Q2

REPORT INFORMATION
  Report Type: Spontaneous
  Country: CA (occurrence: CA)
  Receive Date: 20240603
  Receipt Date: 20240603
  Transmission Date: 20240716
  Serious: Yes (Life-Threatening, Hospitalization, Other)
  Sender: FDA-Public Use
  Company Number: CA-TEVA-VS-3203183

PATIENT
  Age: 18 Year
  Sex: Female

DRUGS (2)
  1. AZATHIOPRINE [Suspect]
     Active Substance: AZATHIOPRINE
     Indication: Product used for unknown indication
     Route: 065
  2. BUDESONIDE [Suspect]
     Active Substance: BUDESONIDE
     Indication: Product used for unknown indication
     Route: 055

REACTIONS (17)
  - Platelet count abnormal [Unknown]
  - Blood albumin abnormal [Unknown]
  - Hypertensive crisis [Unknown]
  - Maternal exposure during pregnancy [Unknown]
  - Mean cell volume abnormal [Unknown]
  - Off label use [Unknown]
  - Pain [Unknown]
  - Product use issue [Unknown]
  - Weight increased [Unknown]
  - White blood cell count abnormal [Unknown]
  - C-reactive protein decreased [Unknown]
  - Colitis [Unknown]
  - Diarrhoea [Unknown]
  - Drug level abnormal [Unknown]
  - Faecal calprotectin abnormal [Unknown]
  - Gastrointestinal disorder [Unknown]
  - Haemoglobin abnormal [Unknown]
